FAERS Safety Report 25773734 (Version 3)
Quarter: 2025Q3

REPORT INFORMATION
  Report Type: Spontaneous
  Country: CL (occurrence: CL)
  Receive Date: 20250908
  Receipt Date: 20250924
  Transmission Date: 20251020
  Serious: Yes (Other)
  Sender: PFIZER
  Company Number: CL-PFIZER INC-PV202500107420

PATIENT
  Age: 66 Year
  Sex: Male
  Weight: 65 kg

DRUGS (16)
  1. LINEZOLID [Interacting]
     Active Substance: LINEZOLID
     Indication: Enterococcal infection
     Dosage: 600 MG EVERY 12 HOURS VIA A 1-HOUR INTERMITTENT INFUSION
     Route: 042
  2. LINEZOLID [Interacting]
     Active Substance: LINEZOLID
     Dosage: 600 MG, EVERY 8 HOURS
     Route: 042
  3. LINEZOLID [Interacting]
     Active Substance: LINEZOLID
     Dosage: 2400 MG, DAILY
     Route: 042
  4. LINEZOLID [Interacting]
     Active Substance: LINEZOLID
     Dosage: 1800 MG, DAILY
     Route: 042
  5. LINEZOLID [Interacting]
     Active Substance: LINEZOLID
     Dosage: 600 MG, 2X/DAY
     Route: 042
  6. FENTANYL [Interacting]
     Active Substance: FENTANYL
     Indication: Sedation
  7. PIPERACILLIN AND TAZOBACTAM [Concomitant]
     Active Substance: PIPERACILLIN SODIUM\TAZOBACTAM SODIUM
  8. CLINDAMYCIN [Concomitant]
     Active Substance: CLINDAMYCIN
     Indication: Evidence based treatment
  9. CEFTRIAXONE [Concomitant]
     Active Substance: CEFTRIAXONE
     Indication: Peritonitis
  10. PROPOFOL [Concomitant]
     Active Substance: PROPOFOL
     Indication: Sedation
  11. NOREPINEPHRINE [Concomitant]
     Active Substance: NOREPINEPHRINE
  12. AVIBACTAM SODIUM\CEFTAZIDIME [Concomitant]
     Active Substance: AVIBACTAM SODIUM\CEFTAZIDIME
     Indication: Pseudomonas infection
  13. AZTREONAM [Concomitant]
     Active Substance: AZTREONAM
     Indication: Pseudomonas infection
  14. ANIDULAFUNGIN [Concomitant]
     Active Substance: ANIDULAFUNGIN
     Indication: Candida infection
  15. KETAMINE [Concomitant]
     Active Substance: KETAMINE
     Indication: Sedation
  16. KETAMINE [Concomitant]
     Active Substance: KETAMINE
     Indication: Analgesic therapy

REACTIONS (4)
  - Drug interaction [Recovered/Resolved]
  - Adrenergic syndrome [Recovered/Resolved]
  - Drug level below therapeutic [Unknown]
  - Treatment failure [Unknown]
